FAERS Safety Report 8515180-6 (Version None)
Quarter: 2012Q3

REPORT INFORMATION
  Report Type: 
  Country: None (occurrence: None)
  Receive Date: 20120717
  Receipt Date: 20120712
  Transmission Date: 20120928
  Serious: Yes (Life-Threatening)
  Sender: FDA-Public Use
  Company Number: JP-GLAXOSMITHKLINE-B0776531A

PATIENT
  Sex: Male
  Weight: 11 kg

DRUGS (51)
  1. PREDNISOLONE [Concomitant]
     Dosage: .2G PER DAY
     Route: 048
     Dates: start: 20110719, end: 20110811
  2. PREDNISOLONE [Concomitant]
     Dosage: 1.1G PER DAY
     Route: 048
     Dates: start: 20110812, end: 20110815
  3. PREDNISOLONE [Concomitant]
     Dosage: .8G PER DAY
     Route: 048
     Dates: start: 20110816, end: 20110819
  4. PREDNISOLONE [Concomitant]
     Dosage: 20MG PER DAY
     Dates: start: 20111222, end: 20111228
  5. PREDNISOLONE [Concomitant]
     Dosage: 5MG PER DAY
     Dates: start: 20120112, end: 20120118
  6. CYCLOPHOSPHAMIDE [Concomitant]
     Dosage: 600MG PER DAY
     Dates: start: 20120501, end: 20120502
  7. ONCOVIN [Concomitant]
     Dosage: .8MG PER DAY
     Route: 042
     Dates: start: 20120403, end: 20120404
  8. CISPLATIN [Concomitant]
     Dosage: 10MG PER DAY
     Route: 042
     Dates: start: 20120207, end: 20120211
  9. MESNA [Concomitant]
     Dosage: 750MG PER DAY
     Dates: start: 20120403, end: 20120404
  10. PREDNISOLONE [Concomitant]
     Dosage: .3G PER DAY
     Route: 048
     Dates: start: 20110705, end: 20110718
  11. PREDNISOLONE [Concomitant]
     Dosage: .5G PER DAY
     Route: 048
     Dates: start: 20111104, end: 20111107
  12. NORMAL HUMAN IMMUNOGLOBULIN [Concomitant]
     Indication: IDIOPATHIC THROMBOCYTOPENIC PURPURA
     Dosage: 12.5G PER DAY
     Route: 042
     Dates: start: 20110812, end: 20110813
  13. NORMAL HUMAN IMMUNOGLOBULIN [Concomitant]
     Dosage: 10G PER DAY
     Route: 042
     Dates: start: 20120114, end: 20120114
  14. CYCLOPHOSPHAMIDE [Concomitant]
     Dosage: 600MG PER DAY
     Dates: start: 20120207, end: 20120208
  15. ONCOVIN [Concomitant]
     Dosage: .8MG PER DAY
     Route: 042
     Dates: start: 20120207, end: 20120208
  16. ONCOVIN [Concomitant]
     Dosage: .8MG PER DAY
     Route: 042
     Dates: start: 20120501, end: 20120501
  17. CISPLATIN [Concomitant]
     Dosage: 10MG PER DAY
     Route: 042
     Dates: start: 20120403, end: 20120407
  18. CISPLATIN [Concomitant]
     Dosage: 10MG PER DAY
     Route: 042
     Dates: start: 20120501, end: 20120505
  19. ALKERAN [Concomitant]
     Dosage: 50MG PER DAY
     Route: 042
     Dates: start: 20120605, end: 20120606
  20. PROMACTA [Suspect]
     Dosage: 12.5MG PER DAY
     Route: 048
     Dates: start: 20110802
  21. PREDNISOLONE [Concomitant]
     Indication: IDIOPATHIC THROMBOCYTOPENIC PURPURA
     Dosage: .44G PER DAY
     Route: 048
     Dates: end: 20110704
  22. PREDNISOLONE [Concomitant]
     Dosage: .33G PER DAY
     Route: 048
     Dates: start: 20110906, end: 20110919
  23. NORMAL HUMAN IMMUNOGLOBULIN [Concomitant]
     Dosage: 12.5G PER DAY
     Route: 042
     Dates: start: 20111129, end: 20111129
  24. ACYCLOVIR [Concomitant]
     Indication: VIITH NERVE PARALYSIS
     Route: 065
     Dates: start: 20111030, end: 20111110
  25. MESNA [Concomitant]
     Dosage: 750MG PER DAY
     Dates: start: 20120501, end: 20120502
  26. THERARUBICIN [Concomitant]
     Dosage: 20MG PER DAY
     Dates: start: 20120113, end: 20120113
  27. THERARUBICIN [Concomitant]
     Dosage: 20MG PER DAY
     Dates: start: 20120405, end: 20120405
  28. CARBOPLATIN [Concomitant]
     Dosage: 200MG PER DAY
     Route: 042
     Dates: start: 20120607, end: 20120610
  29. CYCLOPHOSPHAMIDE [Concomitant]
     Dosage: 600MG PER DAY
     Dates: start: 20120111, end: 20120111
  30. CYCLOPHOSPHAMIDE [Concomitant]
     Dosage: 600MG PER DAY
     Dates: start: 20120403, end: 20120404
  31. MESNA [Concomitant]
     Dosage: 750MG PER DAY
     Dates: start: 20120207, end: 20120208
  32. PREDNISOLONE [Concomitant]
     Dosage: .55G PER DAY
     Route: 048
     Dates: start: 20110820, end: 20110822
  33. PREDNISOLONE [Concomitant]
     Dosage: .25G PER DAY
     Route: 048
     Dates: start: 20110920, end: 20111029
  34. PREDNISOLONE [Concomitant]
     Indication: IDIOPATHIC THROMBOCYTOPENIC PURPURA
     Dosage: 6MG PER DAY
     Dates: start: 20111030, end: 20111101
  35. FIRSTCIN [Concomitant]
     Dosage: 1.8G PER DAY
     Route: 042
     Dates: start: 20111222, end: 20120113
  36. OMEPRAZOLE [Concomitant]
     Dosage: 10MG PER DAY
     Route: 042
     Dates: start: 20120101, end: 20120107
  37. CISPLATIN [Concomitant]
     Dosage: 10MG PER DAY
     Route: 042
     Dates: start: 20120111, end: 20120115
  38. SANDOSTATIN [Concomitant]
     Dosage: 75MCG PER DAY
     Dates: start: 20120613
  39. ONCOVIN [Concomitant]
     Dosage: .8MG PER DAY
     Route: 042
     Dates: start: 20120111, end: 20120111
  40. PREDNISOLONE [Concomitant]
     Dosage: 15MG PER DAY
     Dates: start: 20111229, end: 20120104
  41. PREDNISOLONE [Concomitant]
     Dosage: 10MG PER DAY
     Dates: start: 20120105, end: 20120111
  42. BUPRENORPHINE HCL [Concomitant]
     Indication: ANALGESIC THERAPY
     Route: 065
     Dates: start: 20111230, end: 20120104
  43. SULFAMETHOXAZOLE AND TRIMETHOPRIM [Concomitant]
     Indication: INFECTION PROPHYLAXIS
     Dosage: 1G TWICE PER DAY
     Route: 048
     Dates: start: 20120110, end: 20120110
  44. THERARUBICIN [Concomitant]
     Dosage: 20MG PER DAY
     Dates: start: 20120503, end: 20120503
  45. PROMACTA [Suspect]
     Indication: IDIOPATHIC THROMBOCYTOPENIC PURPURA
     Dosage: 6.25MG PER DAY
     Route: 048
     Dates: start: 20110531, end: 20110801
  46. PREDNISOLONE [Concomitant]
     Dosage: .44G PER DAY
     Route: 048
     Dates: start: 20110823, end: 20110905
  47. PREDNISOLONE [Concomitant]
     Dosage: .28G PER DAY
     Route: 048
     Dates: start: 20111108, end: 20111221
  48. MIDAZOLAM HCL [Concomitant]
     Indication: SEDATION
     Dates: start: 20111230, end: 20120104
  49. MESNA [Concomitant]
     Dosage: 750MG PER DAY
     Dates: start: 20111111, end: 20111111
  50. THERARUBICIN [Concomitant]
     Dosage: 20MG PER DAY
     Dates: start: 20120209, end: 20120209
  51. ETOPOSIDE [Concomitant]
     Dosage: 100MG PER DAY
     Route: 042
     Dates: start: 20120607, end: 20120610

REACTIONS (1)
  - NEUROBLASTOMA [None]
